FAERS Safety Report 12249347 (Version 2)
Quarter: 2016Q2

REPORT INFORMATION
  Report Type: Report from Study
  Country: US (occurrence: US)
  Receive Date: 20160408
  Receipt Date: 20160413
  Transmission Date: 20160815
  Serious: Yes (Hospitalization)
  Sender: FDA-Public Use
  Company Number: US-BIOGEN-2016BI00210818

PATIENT
  Sex: Female

DRUGS (1)
  1. TYSABRI [Suspect]
     Active Substance: NATALIZUMAB
     Indication: MULTIPLE SCLEROSIS
     Route: 042
     Dates: start: 20110315

REACTIONS (5)
  - Mental impairment [Not Recovered/Not Resolved]
  - Diabetes mellitus [Unknown]
  - Restlessness [Unknown]
  - Amnesia [Unknown]
  - Abnormal behaviour [Not Recovered/Not Resolved]
